FAERS Safety Report 16477067 (Version 3)
Quarter: 2019Q3

REPORT INFORMATION
  Report Type: Report from Study
  Country: None (occurrence: TR)
  Receive Date: 20190626
  Receipt Date: 20190709
  Transmission Date: 20191004
  Serious: Yes (Death)
  Sender: FDA-Public Use
  Company Number: TR-ABBVIE-19S-161-2833360-00

PATIENT
  Sex: Male
  Weight: 72 kg

DRUGS (6)
  1. XANAX [Concomitant]
     Active Substance: ALPRAZOLAM
     Indication: ANXIETY
     Route: 048
  2. DUPHALAC [Concomitant]
     Active Substance: LACTULOSE
     Indication: CONSTIPATION
     Dosage: AS NEEDED
     Route: 048
  3. LYRICA [Concomitant]
     Active Substance: PREGABALIN
     Indication: SLEEP DISORDER
     Route: 048
     Dates: start: 20180524
  4. DUODOPA [Suspect]
     Active Substance: CARBIDOPA\LEVODOPA
     Indication: PARKINSON^S DISEASE
     Dosage: MORNING DOSE(ML):4.00 CONTINUES DOSE(ML):2.40 EXTRA DOSE(ML):1.50
     Route: 050
     Dates: start: 20180523
  5. DUODOPA [Suspect]
     Active Substance: CARBIDOPA\LEVODOPA
     Dosage: MORNING DOSE(ML):4.00 CONTINUES DOSE(ML):2.40 EXTRA DOSE(ML):1.50
     Route: 050
  6. PEXA [Concomitant]
     Indication: PARKINSON^S DISEASE
     Route: 048
     Dates: start: 20180524

REACTIONS (1)
  - Death [Fatal]

NARRATIVE: CASE EVENT DATE: 20190617
